FAERS Safety Report 9812097 (Version 2)
Quarter: 2014Q1

REPORT INFORMATION
  Report Type: Spontaneous
  Country: SE (occurrence: SE)
  Receive Date: 20140111
  Receipt Date: 20140116
  Transmission Date: 20141002
  Serious: Yes (Life-Threatening)
  Sender: FDA-Public Use
  Company Number: SE-ASTRAZENECA-2014SE01820

PATIENT
  Age: 82 Year
  Sex: Female
  Weight: 48 kg

DRUGS (9)
  1. FASLODEX [Suspect]
     Indication: BREAST CANCER
     Route: 030
     Dates: start: 201001, end: 2012
  2. FASLODEX [Suspect]
     Indication: BREAST CANCER
     Route: 030
     Dates: start: 2012
  3. XGEVA [Concomitant]
     Indication: METASTASES TO BONE
     Dosage: MONTHLY
  4. BISOPROLOL [Concomitant]
     Indication: ATRIAL FIBRILLATION
  5. CANDESARTAN [Concomitant]
     Indication: CARDIAC FAILURE
     Dosage: GENERIC
  6. ATENOLOL [Concomitant]
     Indication: HYPERTENSION
  7. VITAMINE B [Concomitant]
     Indication: VITAMIN B COMPLEX DEFICIENCY
  8. FEMAR [Concomitant]
     Dates: start: 2005, end: 2008
  9. AROMASIN [Concomitant]

REACTIONS (3)
  - Pulmonary hypertension [Unknown]
  - Cardiac failure congestive [Unknown]
  - Weight decreased [Unknown]
